FAERS Safety Report 8432310-5 (Version None)
Quarter: 2012Q2

REPORT INFORMATION
  Report Type: 
  Country: None (occurrence: None)
  Receive Date: 20120613
  Receipt Date: 20120608
  Transmission Date: 20120825
  Serious: Yes (Other)
  Sender: FDA-Public Use
  Company Number: PHHY2012CZ049781

PATIENT

DRUGS (1)
  1. ONBREZ [Suspect]

REACTIONS (2)
  - MACULAR DEGENERATION [None]
  - VISUAL IMPAIRMENT [None]
